FAERS Safety Report 19396990 (Version 2)
Quarter: 2021Q2

REPORT INFORMATION
  Report Type: Spontaneous
  Country: CN (occurrence: CN)
  Receive Date: 20210610
  Receipt Date: 20210625
  Transmission Date: 20210717
  Serious: Yes (Hospitalization)
  Sender: FDA-Public Use
  Company Number: CN-ROCHE-2845917

PATIENT
  Age: 92 Year
  Sex: Female
  Weight: 72 kg

DRUGS (1)
  1. ACTILYSE [Suspect]
     Active Substance: ALTEPLASE
     Indication: CEREBRAL INFARCTION
     Route: 042
     Dates: start: 20210504, end: 20210504

REACTIONS (4)
  - Peripheral swelling [Unknown]
  - Subcutaneous haematoma [Unknown]
  - Off label use [Unknown]
  - Ecchymosis [Unknown]

NARRATIVE: CASE EVENT DATE: 20210504
